FAERS Safety Report 13681090 (Version 1)
Quarter: 2017Q2

REPORT INFORMATION
  Report Type: Spontaneous
  Country: US (occurrence: US)
  Receive Date: 20170622
  Receipt Date: 20170622
  Transmission Date: 20170830
  Serious: Yes (Death)
  Sender: FDA-Public Use
  Company Number: None

PATIENT
  Age: 62 Year
  Sex: Male

DRUGS (15)
  1. LEVOTHYROXIN [Concomitant]
     Active Substance: LEVOTHYROXINE
  2. PROMETH/COC [Concomitant]
  3. LEVALBUTEROL. [Concomitant]
     Active Substance: LEVALBUTEROL
  4. OXYCODONE [Concomitant]
     Active Substance: OXYCODONE
  5. OXYCONTIN [Concomitant]
     Active Substance: OXYCODONE HYDROCHLORIDE
  6. PREDNISONE. [Concomitant]
     Active Substance: PREDNISONE
  7. METORPROL [Concomitant]
  8. AFINITOR [Suspect]
     Active Substance: EVEROLIMUS
     Indication: RENAL CANCER
     Dosage: 1 TABLET DAILY ORAL
     Route: 048
     Dates: start: 20170211
  9. IPRATROPIUM [Concomitant]
     Active Substance: IPRATROPIUM
  10. AMLODIPINE [Concomitant]
     Active Substance: AMLODIPINE BESYLATE
  11. OMEPRAZOLE. [Concomitant]
     Active Substance: OMEPRAZOLE
  12. BENZONATATE. [Concomitant]
     Active Substance: BENZONATATE
  13. MOTVANTIK [Concomitant]
  14. VORICONAZOLE. [Concomitant]
     Active Substance: VORICONAZOLE
  15. MONTELUKAST [Concomitant]
     Active Substance: MONTELUKAST SODIUM

REACTIONS (1)
  - Death [None]
